FAERS Safety Report 22689791 (Version 2)
Quarter: 2025Q1

REPORT INFORMATION
  Report Type: Spontaneous
  Country: FR (occurrence: FR)
  Receive Date: 20230711
  Receipt Date: 20250108
  Transmission Date: 20250409
  Serious: Yes (Hospitalization, Disabling)
  Sender: UCB
  Company Number: None

PATIENT
  Age: 44 Year
  Sex: Male
  Weight: 108 kg

DRUGS (7)
  1. NEUPRO [Suspect]
     Active Substance: ROTIGOTINE
     Indication: Product used for unknown indication
     Route: 062
     Dates: start: 20130515, end: 2016
  2. NEUPRO [Suspect]
     Active Substance: ROTIGOTINE
     Dates: start: 20130830
  3. AZILECT [Suspect]
     Active Substance: RASAGILINE MESYLATE
     Indication: Product used for unknown indication
     Dates: start: 20130205, end: 201904
  4. RASAGILINE TARTRATE [Suspect]
     Active Substance: RASAGILINE TARTRATE
     Indication: Product used for unknown indication
     Dates: start: 2013
  5. RASAGILINE MESYLATE [Suspect]
     Active Substance: RASAGILINE MESYLATE
     Indication: Product used for unknown indication
     Dates: start: 2013
  6. BENSERAZIDE HYDROCHLORIDE\LEVODOPA [Concomitant]
     Active Substance: BENSERAZIDE HYDROCHLORIDE\LEVODOPA
     Indication: Product used for unknown indication
     Dates: start: 20170929
  7. BENSERAZIDE HYDROCHLORIDE\LEVODOPA [Concomitant]
     Active Substance: BENSERAZIDE HYDROCHLORIDE\LEVODOPA
     Dates: start: 20180323

REACTIONS (8)
  - Parkinson^s disease [Recovering/Resolving]
  - Gaming disorder [Recovered/Resolved]
  - Compulsive shopping [Recovered/Resolved]
  - Somnolence [Recovered/Resolved]
  - Muscle spasms [Recovered/Resolved]
  - Paraesthesia [Recovering/Resolving]
  - Therapy cessation [Unknown]
  - Hyperaesthesia [Unknown]

NARRATIVE: CASE EVENT DATE: 20130101
